FAERS Safety Report 7615635-2 (Version None)
Quarter: 2011Q3

REPORT INFORMATION
  Report Type: 
  Country: None (occurrence: None)
  Receive Date: 20110711
  Receipt Date: 20110701
  Transmission Date: 20111222
  Serious: Yes (Death, Hospitalization, Disabling, Other)
  Sender: FDA-Public Use
  Company Number: 2010SP034645

PATIENT
  Age: 27 Year
  Sex: Female

DRUGS (7)
  1. TRIAMCINOLONE [Concomitant]
  2. CLEOCIN HYDROCHLORIDE [Concomitant]
  3. NUVARING [Suspect]
     Indication: MUSCLE SPASMS
     Dates: start: 20080424, end: 20080620
  4. NUVARING [Suspect]
     Indication: ENDOMETRIOSIS
     Dates: start: 20080424, end: 20080620
  5. RETIN-A [Concomitant]
  6. DOXYCYCLINE HCL [Concomitant]
  7. KETOCONAZOLE [Concomitant]

REACTIONS (37)
  - INTRACRANIAL HYPOTENSION [None]
  - DISEASE COMPLICATION [None]
  - HYDROCEPHALUS [None]
  - OEDEMA PERIPHERAL [None]
  - PHARYNGEAL ABSCESS [None]
  - PSEUDOMONAS INFECTION [None]
  - CEREBRAL HAEMATOMA [None]
  - SUBDURAL HAEMATOMA [None]
  - DEEP VEIN THROMBOSIS [None]
  - HYPOXIC-ISCHAEMIC ENCEPHALOPATHY [None]
  - BRONCHOPNEUMONIA [None]
  - TACHYCARDIA [None]
  - MENTAL STATUS CHANGES [None]
  - POST PROCEDURAL COMPLICATION [None]
  - SUBARACHNOID HAEMORRHAGE [None]
  - INTRACRANIAL VENOUS SINUS THROMBOSIS [None]
  - WOUND SECRETION [None]
  - SERRATIA TEST POSITIVE [None]
  - STAPHYLOCOCCAL INFECTION [None]
  - DRUG RESISTANCE [None]
  - SPASTIC PARAPLEGIA [None]
  - WEIGHT INCREASED [None]
  - CEREBROVASCULAR ACCIDENT [None]
  - BRAIN HERNIATION [None]
  - CNS VENTRICULITIS [None]
  - FATIGUE [None]
  - HEADACHE [None]
  - CEREBRAL THROMBOSIS [None]
  - CAROTID ARTERY STENOSIS [None]
  - DEVICE RELATED INFECTION [None]
  - PERITONEAL ABSCESS [None]
  - URINARY TRACT INFECTION [None]
  - CERUMEN IMPACTION [None]
  - CONVULSION [None]
  - BRAIN CONTUSION [None]
  - MENINGITIS [None]
  - INCISION SITE COMPLICATION [None]
